FAERS Safety Report 8538572-8 (Version None)
Quarter: 2012Q3

REPORT INFORMATION
  Report Type: 
  Country: None (occurrence: None)
  Receive Date: 20120718
  Receipt Date: 20120718
  Transmission Date: 20120928
  Serious: Yes (Other)
  Sender: FDA-Public Use
  Company Number: None

PATIENT
  Sex: Female

DRUGS (2)
  1. ABILIFY [Concomitant]
  2. INVEGA [Suspect]
     Indication: PSYCHOTIC DISORDER
     Dosage: 6MG ONCE/DAY ORAL
     Route: 048

REACTIONS (5)
  - DEPRESSION [None]
  - HEART RATE INCREASED [None]
  - FACIAL SPASM [None]
  - HEADACHE [None]
  - PAIN IN EXTREMITY [None]
